FAERS Safety Report 4674512-X (Version None)
Quarter: 2005Q2

REPORT INFORMATION
  Report Type: 
  Country: None (occurrence: None)
  Receive Date: 20050526
  Receipt Date: 20040527
  Transmission Date: 20051028
  Serious: Yes (Other)
  Sender: FDA-Public Use
  Company Number: US-ROCHE-369544

PATIENT
  Age: 43 Year
  Sex: Female
  Weight: 67.1 kg

DRUGS (8)
  1. PEGASYS [Suspect]
     Indication: HEPATITIS C
     Route: 058
     Dates: start: 20040526
  2. PEGASYS [Suspect]
     Dosage: STRENGTH 180 MCG/ML AND GIVEN O.5 ML.
     Route: 058
     Dates: end: 20050427
  3. COPEGUS [Suspect]
     Indication: HEPATITIS C
     Route: 048
     Dates: end: 20050427
  4. RIBASPHERE [Suspect]
     Indication: HEPATITIS C
     Route: 048
     Dates: start: 20040526, end: 20040928
  5. RIBASPHERE [Suspect]
     Route: 048
     Dates: start: 20040928
  6. PERCOCET [Suspect]
     Route: 048
     Dates: start: 20040515, end: 20040527
  7. LEXAPRO [Concomitant]
     Indication: DEPRESSION
     Route: 048
  8. SYNTHROID [Concomitant]
     Indication: HYPOTHYROIDISM
     Route: 048

REACTIONS (25)
  - ALOPECIA [None]
  - ARTHRALGIA [None]
  - ASTHMA [None]
  - CHEST PAIN [None]
  - CONFUSIONAL STATE [None]
  - DIARRHOEA [None]
  - DRY SKIN [None]
  - DYSPNOEA [None]
  - FATIGUE [None]
  - GASTROENTERITIS VIRAL [None]
  - GINGIVAL INFECTION [None]
  - HAEMOGLOBIN DECREASED [None]
  - HEADACHE [None]
  - HYPOGLYCAEMIA [None]
  - IRRITABILITY [None]
  - MYALGIA [None]
  - NEURALGIA [None]
  - NEUTROPHIL COUNT ABNORMAL [None]
  - PRURITUS [None]
  - PYREXIA [None]
  - RASH [None]
  - RHEUMATOID ARTHRITIS [None]
  - SINUSITIS [None]
  - VISION BLURRED [None]
  - WHITE BLOOD CELL COUNT DECREASED [None]
